FAERS Safety Report 17066357 (Version 1)
Quarter: 2019Q4

REPORT INFORMATION
  Report Type: Spontaneous
  Country: US (occurrence: US)
  Receive Date: 20191122
  Receipt Date: 20191122
  Transmission Date: 20200122
  Serious: No
  Sender: FDA-Public Use
  Company Number: US-PERRIGO-18US012454

PATIENT
  Age: 85 Year
  Sex: Female
  Weight: 68.03 kg

DRUGS (1)
  1. POLYETHYLENE GLYCOL 3350. [Suspect]
     Active Substance: POLYETHYLENE GLYCOL 3350
     Indication: CONSTIPATION
     Dosage: SLIGHTLY MORE THAN 17 G, NIGHTLY
     Route: 048
     Dates: start: 20181028, end: 20181029

REACTIONS (3)
  - Vomiting [Recovered/Resolved]
  - Diarrhoea [Recovered/Resolved]
  - Incorrect dose administered [Recovered/Resolved]

NARRATIVE: CASE EVENT DATE: 20181028
